FAERS Safety Report 5127177-7 (Version None)
Quarter: 2006Q4

REPORT INFORMATION
  Report Type: 
  Country: None (occurrence: None)
  Receive Date: 20061006
  Receipt Date: 20060926
  Transmission Date: 20070319
  Serious: Yes (Death)
  Sender: FDA-Public Use
  Company Number: HQWYE632117AUG06

PATIENT
  Age: 65 Year
  Sex: Male
  Weight: 94.89 kg

DRUGS (16)
  1. EFFEXOR XR [Suspect]
     Indication: DEPRESSION
     Dosage: 150 MG 1X PER 1 DAY, ORAL
     Route: 048
  2. ACTOS [Suspect]
     Indication: DIABETES MELLITUS
     Dosage: 45 MG 1X PER 1 DAY, ORAL
     Route: 048
  3. GLUCOPHAGE [Suspect]
     Indication: DIABETES MELLITUS
     Dosage: 1000 MG 2X PER 1 DAY, ORAL
     Route: 048
  4. GLUCOTROL XL [Suspect]
     Indication: DIABETES MELLITUS
     Dosage: 10 MG 1X PER 1 DAY, ORAL
     Route: 048
  5. LANOXIN [Suspect]
     Indication: TACHYARRHYTHMIA
     Dosage: 0.375 MG 1X PER 1 DAY, ORAL
     Route: 048
  6. LANTUS [Suspect]
     Indication: DIABETES MELLITUS
     Dosage: 70, DAILY, SUBCUTANEOUS
     Route: 058
  7. LIPITOR [Suspect]
     Dosage: ORAL
     Route: 048
  8. LORAZEPAM [Suspect]
     Indication: DEPRESSION
     Dosage: 2 MG 1X PER 1 DAY, ORAL
     Route: 048
  9. MULTIVITAMINS (ASCORBIC ACID/ERGOCALCIFEROL.FOLIC ACID/NICOTINAMIDE/PA [Suspect]
     Dosage: ORAL
     Route: 048
  10. NIASPAN (NICOTNIC ACID, ) [Suspect]
     Indication: HIGH DENSITY LIPOPROTEIN DECREASED
     Dosage: 1000 MG ONCE, ORAL
     Route: 048
     Dates: start: 20060611, end: 20060611
  11. NIASPAN (NICOTNIC ACID, ) [Suspect]
     Indication: HYPERCHOLESTEROLAEMIA
     Dosage: 1000 MG ONCE, ORAL
     Route: 048
     Dates: start: 20060611, end: 20060611
  12. RISPERDAL [Suspect]
     Dosage: 3 MG, ORAL
     Route: 048
  13. TENORMIN [Suspect]
     Indication: TACHYARRHYTHMIA
     Dosage: 100 MG 1X PER 2 DAY, ORAL
     Route: 048
  14. TRAZODONE HCL [Suspect]
     Indication: DEPRESSION
     Dosage: 200 MG 1X PER 1 DAY, ORAL
     Route: 048
  15. TRICOR [Suspect]
     Indication: DYSLIPIDAEMIA
     Dosage: 160 MG 1X PER 1 DAY, ORAL
     Route: 048
  16. WELLBUTRIN [Suspect]
     Indication: DEPRESSION
     Dosage: 300 MG 1X PER 1 DAY, ORAL
     Route: 048

REACTIONS (15)
  - ALANINE AMINOTRANSFERASE INCREASED [None]
  - APNOEA [None]
  - ASPARTATE AMINOTRANSFERASE INCREASED [None]
  - BLOOD GLUCOSE INCREASED [None]
  - CARDIAC ARREST [None]
  - DRUG INTERACTION [None]
  - DRY SKIN [None]
  - GLYCOSYLATED HAEMOGLOBIN INCREASED [None]
  - HAEMOGLOBIN DECREASED [None]
  - HIGH DENSITY LIPOPROTEIN DECREASED [None]
  - MYOCARDIAL INFARCTION [None]
  - PALLOR [None]
  - SKIN WARM [None]
  - SOMNOLENCE [None]
  - ULTRASOUND ABDOMEN ABNORMAL [None]
